FAERS Safety Report 5416366-X (Version None)
Quarter: 2007Q3

REPORT INFORMATION
  Report Type: 
  Country: None (occurrence: None)
  Receive Date: 20070816
  Receipt Date: 20070810
  Transmission Date: 20080115
  Serious: Yes (Disabling, Other)
  Sender: FDA-Public Use
  Company Number: PHNU2007DE02804

PATIENT
  Age: 80 Year
  Sex: Female

DRUGS (5)
  1. ZOMETA [Suspect]
     Indication: METASTASES TO BONE
     Dosage: 4 MG, QMO
     Route: 042
     Dates: start: 20011201
  2. CLINDAMYCIN HCL [Concomitant]
     Route: 065
  3. CORDANUM [Concomitant]
     Dosage: 200 MG, QD
     Route: 065
  4. LISIHEXAL [Concomitant]
     Dosage: 5 MG, QD
     Route: 065
  5. XELODA [Concomitant]
     Route: 065

REACTIONS (10)
  - ACTINOMYCOSIS [None]
  - BIOPSY BONE ABNORMAL [None]
  - BONE DISORDER [None]
  - EXCESSIVE GRANULATION TISSUE [None]
  - OSTEITIS [None]
  - OSTEONECROSIS [None]
  - PERIODONTITIS [None]
  - SEQUESTRECTOMY [None]
  - TOOTH EXTRACTION [None]
  - X-RAY DENTAL [None]
